FAERS Safety Report 6846077-5 (Version None)
Quarter: 2010Q3

REPORT INFORMATION
  Report Type: 
  Country: None (occurrence: None)
  Receive Date: 20100712
  Receipt Date: 20100625
  Transmission Date: 20110219
  Serious: Yes (Hospitalization)
  Sender: FDA-Public Use
  Company Number: RB-07726-2010

PATIENT
  Sex: Female

DRUGS (4)
  1. SUBOXONE [Suspect]
     Indication: DRUG DEPENDENCE
     Dosage: 8 MG BID SUBLINGUAL, 8 MG QD SUBLINGUAL
     Route: 060
     Dates: start: 20091001, end: 20100101
  2. SUBOXONE [Suspect]
     Indication: DRUG DEPENDENCE
     Dosage: 8 MG BID SUBLINGUAL, 8 MG QD SUBLINGUAL
     Route: 060
     Dates: start: 20100101
  3. LYRICA [Suspect]
     Indication: PRODUCT USED FOR UNKNOWN INDICATION
     Dosage: DOSING INFORMATION UNKNOWN
  4. ADDERALL 10 [Concomitant]

REACTIONS (7)
  - ARTHROPATHY [None]
  - BACK PAIN [None]
  - CONCUSSION [None]
  - MUSCLE SPASMS [None]
  - NASOPHARYNGITIS [None]
  - SKIN LACERATION [None]
  - SUICIDAL IDEATION [None]
